FAERS Safety Report 9451072 (Version 1)
Quarter: 2013Q3

REPORT INFORMATION
  Report Type: Spontaneous
  Country: NZ (occurrence: NZ)
  Receive Date: 20130809
  Receipt Date: 20130809
  Transmission Date: 20140515
  Serious: Yes (Other)
  Sender: FDA-Public Use
  Company Number: NZ-ABBOTT-13P-118-1127347-00

PATIENT
  Age: 40 Year
  Sex: Female

DRUGS (9)
  1. HUMIRA [Suspect]
     Indication: PRODUCT USED FOR UNKNOWN INDICATION
     Dates: start: 2009
  2. HUMIRA [Suspect]
     Dates: start: 2012
  3. AZATHIOPRINE [Concomitant]
     Indication: PRODUCT USED FOR UNKNOWN INDICATION
     Dates: start: 1991
  4. AZATHIOPRINE [Concomitant]
     Dates: start: 201111
  5. METRONIDAZOLE [Concomitant]
     Indication: PRODUCT USED FOR UNKNOWN INDICATION
  6. METRONIDAZOLE [Concomitant]
     Dates: start: 201104
  7. PREDNISONE [Concomitant]
     Indication: PRODUCT USED FOR UNKNOWN INDICATION
     Dates: start: 201104
  8. PREDNISONE [Concomitant]
     Dates: start: 2012
  9. CIPROFLOXACIN [Concomitant]
     Indication: PRODUCT USED FOR UNKNOWN INDICATION

REACTIONS (21)
  - Drain placement [Unknown]
  - Proctalgia [Unknown]
  - Rectal discharge [Unknown]
  - Pyrexia [Unknown]
  - Abscess [Unknown]
  - Fistula discharge [Unknown]
  - Crohn^s disease [Unknown]
  - Anorectal disorder [Unknown]
  - Flatulence [Unknown]
  - Secretion discharge [Unknown]
  - Proctalgia [Unknown]
  - Scar [Unknown]
  - Fistula [Unknown]
  - Secretion discharge [Unknown]
  - Pain [Unknown]
  - Weight decreased [Unknown]
  - Crohn^s disease [Unknown]
  - Rectal discharge [Unknown]
  - Secretion discharge [Unknown]
  - Ileostomy [Unknown]
  - Anal stenosis [Unknown]
